FAERS Safety Report 8350593-7 (Version None)
Quarter: 2012Q2

REPORT INFORMATION
  Report Type: 
  Country: None (occurrence: None)
  Receive Date: 20120510
  Receipt Date: 20120430
  Transmission Date: 20120825
  Serious: Yes (Hospitalization, Other)
  Sender: FDA-Public Use
  Company Number: US-MERCK-1107USA03272

PATIENT
  Age: 56 Year
  Sex: Female

DRUGS (7)
  1. ASCORBIC ACID [Concomitant]
     Route: 065
     Dates: start: 19950101
  2. MAGNESIUM (UNSPECIFIED) [Concomitant]
     Route: 065
     Dates: start: 19950101
  3. CHOLECALCIFEROL [Concomitant]
     Route: 065
     Dates: start: 19950101
  4. FOSAMAX [Suspect]
     Route: 048
     Dates: start: 20011023, end: 20070101
  5. FOSAMAX [Suspect]
     Indication: OSTEOPOROSIS
     Route: 048
     Dates: start: 19960627, end: 20011108
  6. CALCIUM (UNSPECIFIED) [Concomitant]
     Route: 065
  7. PRILOSEC [Concomitant]
     Route: 065
     Dates: start: 19950101, end: 20000101

REACTIONS (52)
  - BREAST FIBROSIS [None]
  - DEPRESSION [None]
  - FOOT DEFORMITY [None]
  - ARTHRITIS [None]
  - ABDOMINAL DISTENSION [None]
  - DIARRHOEA [None]
  - LIVER DISORDER [None]
  - RECTOCELE [None]
  - RASH [None]
  - PELVIC PROLAPSE [None]
  - ONYCHOMYCOSIS [None]
  - LYMPHADENOPATHY [None]
  - DECUBITUS ULCER [None]
  - ENZYME ABNORMALITY [None]
  - LUNG NEOPLASM [None]
  - SINUS CONGESTION [None]
  - MUSCLE SPASMS [None]
  - CYSTOCELE [None]
  - FALL [None]
  - ANAL SPHINCTER ATONY [None]
  - HYPERLIPIDAEMIA [None]
  - OSTEOARTHRITIS [None]
  - FRACTURED ISCHIUM [None]
  - LOW TURNOVER OSTEOPATHY [None]
  - HEPATIC STEATOSIS [None]
  - STRESS URINARY INCONTINENCE [None]
  - VERTIGO [None]
  - NERVE INJURY [None]
  - INTERVERTEBRAL DISC DEGENERATION [None]
  - CHOLELITHIASIS [None]
  - BREAST CANCER METASTATIC [None]
  - CONTUSION [None]
  - GAIT DISTURBANCE [None]
  - DYSPEPSIA [None]
  - MASS [None]
  - FEMUR FRACTURE [None]
  - METASTASES TO LARGE INTESTINE [None]
  - BURNING SENSATION [None]
  - FRACTURE NONUNION [None]
  - EXCORIATION [None]
  - DIVERTICULUM [None]
  - SCAPULA FRACTURE [None]
  - PARAESTHESIA [None]
  - FOOT FRACTURE [None]
  - BUNION [None]
  - VERTIGO POSITIONAL [None]
  - GALLBLADDER DISORDER [None]
  - FATIGUE [None]
  - HAEMORRHOIDS [None]
  - TOOTH DISORDER [None]
  - WEIGHT DECREASED [None]
  - GASTROINTESTINAL DISORDER [None]
